FAERS Safety Report 4301230-X (Version None)
Quarter: 2004Q1

REPORT INFORMATION
  Report Type: 
  Country: None (occurrence: None)
  Receive Date: 20040218
  Receipt Date: 20031029
  Transmission Date: 20041129
  Serious: No
  Sender: FDA-Public Use
  Company Number: 2003-10-3065

PATIENT
  Age: 50 Year
  Sex: Male
  Weight: 77.5651 kg

DRUGS (2)
  1. PEG-INTRON [Suspect]
     Indication: HEPATITIS C
     Dosage: 120 MCG QW
     Route: 058
     Dates: start: 20030926
  2. RIBAVIRIN [Suspect]
     Indication: HEPATITIS C
     Dosage: 1200 MG QD
     Route: 048
     Dates: start: 20030926, end: 20031028

REACTIONS (6)
  - DESQUAMATION MOUTH [None]
  - DRY MOUTH [None]
  - DYSGEUSIA [None]
  - MOUTH ULCERATION [None]
  - ORAL CANDIDIASIS [None]
  - ORAL PAIN [None]
